FAERS Safety Report 5466779-5 (Version None)
Quarter: 2007Q3

REPORT INFORMATION
  Report Type: 
  Country: None (occurrence: None)
  Receive Date: 20070920
  Receipt Date: 20070911
  Transmission Date: 20080115
  Serious: Yes (Hospitalization)
  Sender: FDA-Public Use
  Company Number: SPV1-2007-04120

PATIENT
  Age: 74 Year
  Sex: Male

DRUGS (15)
  1. 405 (LANTHANUM CARBONATE)(405 (LANTHANUM CARBONATE)) CHEWABLE TABLET [Suspect]
     Indication: HYPERPHOSPHATAEMIA
     Dosage: 1500 MG, ORAL; 2250 MG, ORAL; 150 MG, ORAL; 750 MG, ORAL
     Route: 048
     Dates: start: 20050301, end: 20050321
  2. 405 (LANTHANUM CARBONATE)(405 (LANTHANUM CARBONATE)) CHEWABLE TABLET [Suspect]
     Indication: HYPERPHOSPHATAEMIA
     Dosage: 1500 MG, ORAL; 2250 MG, ORAL; 150 MG, ORAL; 750 MG, ORAL
     Route: 048
     Dates: start: 20050322, end: 20050613
  3. 405 (LANTHANUM CARBONATE)(405 (LANTHANUM CARBONATE)) CHEWABLE TABLET [Suspect]
     Indication: HYPERPHOSPHATAEMIA
     Dosage: 1500 MG, ORAL; 2250 MG, ORAL; 150 MG, ORAL; 750 MG, ORAL
     Route: 048
     Dates: start: 20050614, end: 20060630
  4. 405 (LANTHANUM CARBONATE)(405 (LANTHANUM CARBONATE)) CHEWABLE TABLET [Suspect]
     Indication: HYPERPHOSPHATAEMIA
     Dosage: 1500 MG, ORAL; 2250 MG, ORAL; 150 MG, ORAL; 750 MG, ORAL
     Route: 048
     Dates: start: 20060131
  5. CANDESARTAN CILEXETIL [Concomitant]
  6. DIGITOXIN TAB [Concomitant]
  7. INTAL [Concomitant]
  8. LAXOBERON (SODIUM PICOSULFATE) [Concomitant]
  9. YAKUBAN (FLURBIPROFEN) [Concomitant]
  10. BISACODYL (BISACODYL) [Concomitant]
  11. ROCALTROL [Concomitant]
  12. ADALAT [Concomitant]
  13. PURSENNID (SENNA ALEXANDRINA LEAF) [Concomitant]
  14. HEPARIN [Concomitant]
  15. VOLTAREN [Concomitant]

REACTIONS (1)
  - COLONIC POLYP [None]
